FAERS Safety Report 4873159-X (Version None)
Quarter: 2006Q1

REPORT INFORMATION
  Report Type: 
  Country: None (occurrence: None)
  Receive Date: 20060105
  Receipt Date: 20051229
  Transmission Date: 20060701
  Serious: Yes (Life-Threatening, Hospitalization)
  Sender: FDA-Public Use
  Company Number: JP-ABBOTT-05P-087-0320883-00

PATIENT
  Age: 78 Year
  Sex: Female

DRUGS (4)
  1. KLARICID [Suspect]
     Indication: DRUG USE FOR UNKNOWN INDICATION
     Route: 048
  2. CANDESARTAN CILEXETIL [Interacting]
     Indication: HYPERTENSION
     Route: 048
     Dates: start: 20041101, end: 20051117
  3. CANDESARTAN CILEXETIL [Interacting]
     Indication: CARDIAC FAILURE
  4. DISOPYRAMIDE [Concomitant]
     Indication: DRUG USE FOR UNKNOWN INDICATION

REACTIONS (3)
  - DRUG INTERACTION [None]
  - RENAL FAILURE ACUTE [None]
  - SHOCK [None]
